FAERS Safety Report 6792973-7 (Version None)
Quarter: 2010Q2

REPORT INFORMATION
  Report Type: 
  Country: None (occurrence: None)
  Receive Date: 20100624
  Receipt Date: 20090604
  Transmission Date: 20101027
  Serious: No
  Sender: FDA-Public Use
  Company Number: US-PFIZER INC-2008091280

PATIENT
  Sex: Female
  Weight: 47.7 kg

DRUGS (1)
  1. NICOTROL [Suspect]
     Dosage: UNK
     Route: 045

REACTIONS (2)
  - ALOPECIA [None]
  - CONSTIPATION [None]
